FAERS Safety Report 17257439 (Version 4)
Quarter: 2020Q2

REPORT INFORMATION
  Report Type: Report from Study
  Country: MX (occurrence: MX)
  Receive Date: 20200110
  Receipt Date: 20200603
  Transmission Date: 20200713
  Serious: Yes (Other)
  Sender: FDA-Public Use
  Company Number: NVSC2020MX004362

PATIENT
  Age: 69 Year
  Sex: Male
  Weight: 70 kg

DRUGS (2)
  1. INSULIN [Concomitant]
     Active Substance: INSULIN NOS
     Indication: DIABETES MELLITUS
     Dosage: 10 IU, QD (STARTED 12 YEARS AGO)
     Route: 030
  2. ENTRESTO [Suspect]
     Active Substance: SACUBITRIL\VALSARTAN
     Indication: CARDIAC DISORDER
     Dosage: 50 MG, QD
     Route: 048
     Dates: start: 201905

REACTIONS (13)
  - Blindness [Unknown]
  - Dyspnoea [Unknown]
  - Product prescribing error [Unknown]
  - Arthralgia [Recovered/Resolved]
  - Product use in unapproved indication [Unknown]
  - Swelling [Recovered/Resolved]
  - Malaise [Unknown]
  - Productive cough [Unknown]
  - Inflammation [Unknown]
  - Pulmonary oedema [Unknown]
  - Gangrene [Unknown]
  - Feeling of despair [Unknown]
  - Prescribed underdose [Unknown]

NARRATIVE: CASE EVENT DATE: 201905
